FAERS Safety Report 21324920 (Version 1)
Quarter: 2022Q3

REPORT INFORMATION
  Report Type: Spontaneous
  Country: IL (occurrence: IL)
  Receive Date: 20220912
  Receipt Date: 20220912
  Transmission Date: 20221026
  Serious: Yes (Disabling)
  Sender: FDA-Public Use
  Company Number: IL-TEVA-2022-IL-2071513

PATIENT
  Age: 44 Year
  Sex: Female

DRUGS (1)
  1. DULOXETINE [Suspect]
     Active Substance: DULOXETINE
     Indication: Product used for unknown indication
     Route: 065
     Dates: start: 20161108

REACTIONS (4)
  - Tremor [Unknown]
  - Asthenia [Unknown]
  - Asthenia [Unknown]
  - Mood altered [Unknown]
